FAERS Safety Report 6690866-7 (Version None)
Quarter: 2010Q2

REPORT INFORMATION
  Report Type: 
  Country: None (occurrence: None)
  Receive Date: 20100421
  Receipt Date: 20100407
  Transmission Date: 20101027
  Serious: Yes (Other)
  Sender: FDA-Public Use
  Company Number: US-MYLANLABS-2010S1005826

PATIENT
  Age: 8 Year
  Sex: Female

DRUGS (2)
  1. LAMOTRIGINE [Suspect]
     Indication: CONVULSION
     Dosage: SLOW TITRATION TO A DOSE OF 15 MG/DAY
     Route: 065
  2. LEVETIRACETAM [Concomitant]
     Route: 065

REACTIONS (3)
  - AGGRESSION [None]
  - PSYCHOMOTOR HYPERACTIVITY [None]
  - SELF INJURIOUS BEHAVIOUR [None]
